FAERS Safety Report 4295458-5 (Version None)
Quarter: 2004Q1

REPORT INFORMATION
  Report Type: 
  Country: None (occurrence: None)
  Receive Date: 20040216
  Receipt Date: 20040203
  Transmission Date: 20041129
  Serious: Yes (Other)
  Sender: FDA-Public Use
  Company Number: JP-ROCHE-358264

PATIENT
  Age: 15 Year
  Sex: Male

DRUGS (3)
  1. TAMIFLU [Suspect]
     Indication: INFLUENZA
     Route: 048
     Dates: start: 20040130, end: 20040130
  2. MUCODYNE [Concomitant]
     Route: 048
  3. TAVEGYL [Concomitant]
     Route: 048

REACTIONS (1)
  - TONGUE PARALYSIS [None]
